FAERS Safety Report 21157617 (Version 3)
Quarter: 2022Q3

REPORT INFORMATION
  Report Type: Spontaneous
  Country: US (occurrence: US)
  Receive Date: 20220801
  Receipt Date: 20220923
  Transmission Date: 20221027
  Serious: Yes (Other)
  Sender: FDA-Public Use
  Company Number: US-GSK-US2022110032

PATIENT

DRUGS (1)
  1. BENLYSTA [Suspect]
     Active Substance: BELIMUMAB
     Indication: Systemic lupus erythematosus
     Dosage: 650 MG, Z

REACTIONS (6)
  - Systemic lupus erythematosus [Unknown]
  - Arthralgia [Unknown]
  - Dry skin [Unknown]
  - Pruritus [Unknown]
  - Rash [Recovering/Resolving]
  - Muscle spasms [Unknown]

NARRATIVE: CASE EVENT DATE: 20220216
